FAERS Safety Report 4657937-8 (Version None)
Quarter: 2005Q2

REPORT INFORMATION
  Report Type: 
  Country: None (occurrence: None)
  Receive Date: 20050504
  Receipt Date: 20041214
  Transmission Date: 20051028
  Serious: Yes (Other)
  Sender: FDA-Public Use
  Company Number: 003870

PATIENT
  Sex: Female

DRUGS (4)
  1. CENESTIN [Suspect]
     Dates: start: 19950101, end: 20020101
  2. PREMPHASE (PREMARIN;CYCRIN 14/14) [Suspect]
     Dates: start: 19950101, end: 20020101
  3. PROVERA [Suspect]
     Dates: start: 19950101, end: 20020101
  4. PROMETRIUM [Suspect]
     Dates: start: 19950101, end: 20020101

REACTIONS (1)
  - BREAST CANCER [None]
